FAERS Safety Report 17458652 (Version 1)
Quarter: 2020Q1

REPORT INFORMATION
  Report Type: Spontaneous
  Country: US (occurrence: US)
  Receive Date: 20200225
  Receipt Date: 20200225
  Transmission Date: 20200409
  Serious: No
  Sender: FDA-Public Use
  Company Number: US-IGSA-SR10007840

PATIENT
  Age: 72 Year
  Sex: Female
  Weight: 53 kg

DRUGS (17)
  1. TRAMADOL. [Concomitant]
     Active Substance: TRAMADOL
  2. METOPROLOL. [Concomitant]
     Active Substance: METOPROLOL
  3. SALINE                             /00075401/ [Concomitant]
     Active Substance: SODIUM CHLORIDE
     Route: 045
  4. VENTOLIN [Concomitant]
     Active Substance: ALBUTEROL SULFATE
  5. MVI                                /01825701/ [Concomitant]
     Active Substance: VITAMINS
  6. PROLASTIN-C LIQUID [Suspect]
     Active Substance: .ALPHA.1-PROTEINASE INHIBITOR HUMAN
     Indication: ALPHA-1 ANTI-TRYPSIN DEFICIENCY
     Dosage: 3180 MG, Q.WK.
     Route: 042
     Dates: start: 20181218
  7. TYLENOL [Concomitant]
     Active Substance: ACETAMINOPHEN
  8. IMODIUM [Concomitant]
     Active Substance: LOPERAMIDE HYDROCHLORIDE
  9. HYDROXYCHLOROQUINE [Concomitant]
     Active Substance: HYDROXYCHLOROQUINE
  10. ASPIRIN                            /00346701/ [Concomitant]
     Active Substance: ASCORBIC ACID\ASPIRIN
  11. XALATAN [Concomitant]
     Active Substance: LATANOPROST
  12. BENADRYL [Concomitant]
     Active Substance: DIPHENHYDRAMINE HYDROCHLORIDE
  13. NASACORT [Concomitant]
     Active Substance: TRIAMCINOLONE ACETONIDE
  14. LEVOTHYROXINE. [Concomitant]
     Active Substance: LEVOTHYROXINE
  15. LIPITOR [Concomitant]
     Active Substance: ATORVASTATIN CALCIUM
  16. ALLEGRA [Concomitant]
     Active Substance: FEXOFENADINE HYDROCHLORIDE
  17. POLYETHYLENE [Concomitant]
     Active Substance: HIGH DENSITY POLYETHYLENE

REACTIONS (1)
  - Fatigue [Not Recovered/Not Resolved]

NARRATIVE: CASE EVENT DATE: 20190103
